FAERS Safety Report 15521969 (Version 1)
Quarter: 2018Q4

REPORT INFORMATION
  Report Type: Report from Study
  Country: US (occurrence: US)
  Receive Date: 20181017
  Receipt Date: 20181017
  Transmission Date: 20190205
  Serious: No
  Sender: FDA-Public Use
  Company Number: US-AMGEN-USASL2018114575

PATIENT
  Age: 78 Year
  Sex: Female

DRUGS (1)
  1. REPATHA [Suspect]
     Active Substance: EVOLOCUMAB
     Indication: HYPERCHOLESTEROLAEMIA
     Dosage: 140 MG, Q2WK
     Route: 065

REACTIONS (17)
  - Urinary incontinence [Unknown]
  - Productive cough [Unknown]
  - Dizziness [Unknown]
  - Mouth injury [Not Recovered/Not Resolved]
  - Dysphonia [Unknown]
  - Musculoskeletal pain [Unknown]
  - Back pain [Unknown]
  - Oropharyngeal pain [Unknown]
  - Rhinorrhoea [Unknown]
  - Gingival swelling [Unknown]
  - Vision blurred [Unknown]
  - Influenza like illness [Unknown]
  - Neck pain [Unknown]
  - Toothache [Unknown]
  - Arthralgia [Unknown]
  - Night sweats [Unknown]
  - Muscle spasms [Unknown]
